FAERS Safety Report 24713335 (Version 1)
Quarter: 2024Q4

REPORT INFORMATION
  Report Type: Spontaneous
  Country: US (occurrence: US)
  Receive Date: 20241209
  Receipt Date: 20241209
  Transmission Date: 20250115
  Serious: No
  Sender: REGENERON
  Company Number: US-REGENERON PHARMACEUTICALS, INC.-2024-031589

PATIENT
  Sex: Male

DRUGS (1)
  1. EYLEA [Suspect]
     Active Substance: AFLIBERCEPT
     Indication: Eye disorder
     Dosage: UNK, FORMULATION: UNKNOWN
     Dates: start: 2023, end: 2023

REACTIONS (3)
  - Illness [Unknown]
  - Product dose omission issue [Unknown]
  - Sneezing [Unknown]

NARRATIVE: CASE EVENT DATE: 20240213
